FAERS Safety Report 9452419 (Version 1)
Quarter: 2013Q3

REPORT INFORMATION
  Report Type: Spontaneous
  Country: US (occurrence: None)
  Receive Date: 20130808
  Receipt Date: 20130808
  Transmission Date: 20140515
  Serious: Yes (Life-Threatening)
  Sender: FDA-Public Use
  Company Number: None

PATIENT
  Age: 22 Year
  Sex: Female
  Weight: 61 kg

DRUGS (1)
  1. LEVOFLOXACIN [Suspect]
     Indication: PYELONEPHRITIS
     Route: 048
     Dates: start: 20130805, end: 20130806

REACTIONS (4)
  - Ventricular arrhythmia [None]
  - Nausea [None]
  - Vomiting [None]
  - Hyperkalaemia [None]
